FAERS Safety Report 18020530 (Version 1)
Quarter: 2020Q3

REPORT INFORMATION
  Report Type: Report from Study
  Country: AR (occurrence: AR)
  Receive Date: 20200714
  Receipt Date: 20200714
  Transmission Date: 20201103
  Serious: Yes (Death)
  Sender: FDA-Public Use
  Company Number: AR-KARYOPHARM THERAPEUTICS, INC.-2020KPT000475

PATIENT
  Age: 63 Year
  Sex: Female

DRUGS (1)
  1. SELINEXOR [Suspect]
     Active Substance: SELINEXOR
     Indication: PRODUCT USED FOR UNKNOWN INDICATION
     Dosage: 20 MG TO 40MG
     Route: 048
     Dates: start: 20191125, end: 20200201

REACTIONS (4)
  - Septic shock [Fatal]
  - Pneumonia [Fatal]
  - Nausea [Unknown]
  - Thrombocytopenia [Unknown]

NARRATIVE: CASE EVENT DATE: 20200210
